FAERS Safety Report 10432593 (Version 2)
Quarter: 2015Q1

REPORT INFORMATION
  Report Type: Spontaneous
  Country: US (occurrence: None)
  Receive Date: 20140815
  Receipt Date: 20150129
  Transmission Date: 20150720
  Serious: No
  Sender: FDA-Public Use
  Company Number: A-NJ2014-101262

PATIENT
  Age: 71 Year
  Sex: Female

DRUGS (11)
  1. OPSUMIT [Suspect]
     Active Substance: MACITENTAN
     Indication: PULMONARY ARTERIAL HYPERTENSION
     Route: 048
     Dates: start: 20140611
  2. LASIX [Concomitant]
     Active Substance: FUROSEMIDE
  3. ASPIRIN (ACETYLSALICYLIC ACID) [Concomitant]
     Active Substance: ASPIRIN
  4. NITROSTAT (GLYCERYL TRINITRATE) [Concomitant]
  5. ATORVASTATIN [Concomitant]
     Active Substance: ATORVASTATIN
  6. TRAZODONE [Concomitant]
     Active Substance: TRAZODONE HYDROCHLORIDE
  7. ALBUTEROL HFA (SALBUTAMOL) [Concomitant]
  8. DOXYLAMINE [Concomitant]
     Active Substance: DOXYLAMINE
  9. ADVAIR DISKUS [Concomitant]
     Active Substance: FLUTICASONE PROPIONATE\SALMETEROL XINAFOATE
  10. ADCIRCA [Concomitant]
     Active Substance: TADALAFIL
  11. AMBRISENTAN [Concomitant]
     Active Substance: AMBRISENTAN

REACTIONS (4)
  - Limb discomfort [None]
  - Oedema peripheral [None]
  - Epistaxis [None]
  - Swelling face [None]

NARRATIVE: CASE EVENT DATE: 2014
